FAERS Safety Report 14536941 (Version 1)
Quarter: 2018Q1

REPORT INFORMATION
  Report Type: Spontaneous
  Country: FR (occurrence: FR)
  Receive Date: 20180215
  Receipt Date: 20180215
  Transmission Date: 20180509
  Serious: Yes (Hospitalization)
  Sender: FDA-Public Use
  Company Number: FR-ALLERGAN-1808225US

PATIENT
  Age: 63 Year
  Sex: Female

DRUGS (32)
  1. ACTISKENAN [Concomitant]
     Active Substance: MORPHINE SULFATE
     Indication: PRODUCT USED FOR UNKNOWN INDICATION
     Dosage: 20 MG, QID
     Route: 048
     Dates: start: 20090814
  2. PREVISCAN (FLUINDIONE) [Concomitant]
     Active Substance: FLUINDIONE
     Dosage: 20 MG, ON PAIR DAYS
     Dates: start: 20090901
  3. PREVISCAN (FLUINDIONE) [Concomitant]
     Active Substance: FLUINDIONE
     Dosage: 20 MG, ON ODD DAYS
     Dates: start: 20090901
  4. GEMZAR [Concomitant]
     Active Substance: GEMCITABINE HYDROCHLORIDE
     Indication: NON-SMALL CELL LUNG CANCER
     Dosage: 1 DF, BID
     Route: 042
     Dates: start: 20090707, end: 20090707
  5. CISPLASTINE [Concomitant]
     Indication: NON-SMALL CELL LUNG CANCER
     Dosage: 1 DF, BID
     Route: 030
     Dates: start: 20090707, end: 20090707
  6. AVASTIN [Concomitant]
     Active Substance: BEVACIZUMAB
     Dosage: 1 DF, BID
     Route: 042
     Dates: start: 20090825, end: 20090825
  7. EPREX [Concomitant]
     Active Substance: ERYTHROPOIETIN
     Indication: PRODUCT USED FOR UNKNOWN INDICATION
     Dosage: 1 DF, Q WEEK
     Route: 065
     Dates: start: 20090814, end: 20090814
  8. PRIMPERAN [Concomitant]
     Active Substance: METOCLOPRAMIDE HYDROCHLORIDE
     Indication: NAUSEA
     Dosage: UNK UNK, QD
     Dates: start: 20090814
  9. NOROXINE [Concomitant]
     Active Substance: NORFLOXACIN
     Indication: PRODUCT USED FOR UNKNOWN INDICATION
     Dosage: 400 MG, QD
     Route: 048
     Dates: start: 20090905
  10. AVASTIN [Concomitant]
     Active Substance: BEVACIZUMAB
     Dosage: 1 DF, BID
     Route: 042
     Dates: start: 20090728, end: 20090728
  11. LEXOMIL [Concomitant]
     Active Substance: BROMAZEPAM
     Indication: PRODUCT USED FOR UNKNOWN INDICATION
     Dosage: 0.5 UNK, UNK
     Route: 048
     Dates: start: 20090814
  12. LEXOMIL [Concomitant]
     Active Substance: BROMAZEPAM
     Dosage: 0.5 UNK, UNK
     Route: 048
     Dates: start: 20090814
  13. GEMZAR [Concomitant]
     Active Substance: GEMCITABINE HYDROCHLORIDE
     Dosage: 1 DF, BID
     Route: 042
     Dates: start: 20090825, end: 20090825
  14. AVASTIN [Concomitant]
     Active Substance: BEVACIZUMAB
     Indication: NON-SMALL CELL LUNG CANCER
     Dosage: 1 DF, BID
     Route: 042
     Dates: start: 20090707, end: 20090707
  15. DUPHALAC [Concomitant]
     Active Substance: LACTULOSE
     Indication: PRODUCT USED FOR UNKNOWN INDICATION
     Dosage: UNK
     Route: 065
     Dates: start: 20090814
  16. FOSFOMYCIN TROMETHAMINE - BP [Suspect]
     Active Substance: FOSFOMYCIN TROMETHAMINE
     Indication: CYSTITIS
     Dosage: 3 G, SINGLE
     Route: 048
     Dates: start: 20090903, end: 20090903
  17. PREVISCAN (FLUINDIONE) [Concomitant]
     Active Substance: FLUINDIONE
     Indication: DEEP VEIN THROMBOSIS
     Dosage: 30 MG, QD
     Route: 048
     Dates: start: 20090805
  18. CISPLASTINE [Concomitant]
     Dosage: 1 DF, BID
     Route: 030
     Dates: start: 20090715, end: 20090715
  19. CISPLASTINE [Concomitant]
     Dosage: 1 DF, BID
     Route: 030
     Dates: start: 20090825, end: 20090825
  20. TARDYFERON [Concomitant]
     Active Substance: FERROUS SULFATE
     Indication: PRODUCT USED FOR UNKNOWN INDICATION
     Dosage: 80 MG, QD
     Route: 048
     Dates: start: 20090814
  21. LANSOYL [Concomitant]
     Active Substance: MINERAL OIL
     Indication: DIARRHOEA
     Dosage: UNK UNK, PRN
     Route: 065
     Dates: start: 20090814
  22. GEMZAR [Concomitant]
     Active Substance: GEMCITABINE HYDROCHLORIDE
     Dosage: 1 DF, BID
     Route: 042
     Dates: start: 20090715, end: 20090715
  23. GEMZAR [Concomitant]
     Active Substance: GEMCITABINE HYDROCHLORIDE
     Dosage: 1 DF, BID
     Route: 042
     Dates: start: 20090728, end: 20090728
  24. GEMZAR [Concomitant]
     Active Substance: GEMCITABINE HYDROCHLORIDE
     Dosage: 1 DF, BID
     Route: 042
     Dates: start: 20090806, end: 20090806
  25. SOLUPRED (PREDNISOLONE) [Concomitant]
     Active Substance: PREDNISOLONE
     Indication: PRODUCT USED FOR UNKNOWN INDICATION
     Dosage: 20 MG, UNK
     Route: 048
     Dates: start: 20090814
  26. SEROPLEX [Concomitant]
     Active Substance: ESCITALOPRAM OXALATE
     Indication: PRODUCT USED FOR UNKNOWN INDICATION
     Dosage: 10 MG, UNK
     Route: 048
     Dates: start: 20090814
  27. INIPOMP [Concomitant]
     Active Substance: PANTOPRAZOLE SODIUM
     Indication: PRODUCT USED FOR UNKNOWN INDICATION
     Dosage: 20 MG, QD
     Route: 048
     Dates: start: 20090814
  28. MUTESA [Concomitant]
     Indication: PRODUCT USED FOR UNKNOWN INDICATION
     Dosage: TEA SPOON
     Route: 048
     Dates: start: 20090814
  29. SKENAN [Concomitant]
     Active Substance: MORPHINE SULFATE
     Indication: PRODUCT USED FOR UNKNOWN INDICATION
     Dosage: 60 MG, BID
     Route: 048
  30. GELUPRANE [Concomitant]
     Active Substance: ACETAMINOPHEN
     Indication: PRODUCT USED FOR UNKNOWN INDICATION
     Dosage: 1000 MG, TID
     Route: 048
     Dates: start: 20090814
  31. CISPLASTINE [Concomitant]
     Dosage: 1 DF, BID
     Route: 030
     Dates: start: 20090728, end: 20090728
  32. CISPLASTINE [Concomitant]
     Dosage: 1 DF, BID
     Route: 030
     Dates: start: 20090806, end: 20090806

REACTIONS (1)
  - International normalised ratio increased [Recovered/Resolved]

NARRATIVE: CASE EVENT DATE: 20090901
